FAERS Safety Report 25056136 (Version 1)
Quarter: 2025Q1

REPORT INFORMATION
  Report Type: Spontaneous
  Country: US (occurrence: US)
  Receive Date: 20250309
  Receipt Date: 20250309
  Transmission Date: 20250408
  Serious: Yes (Other)
  Sender: BAUSCH AND LOMB
  Company Number: US-BAUSCHBL-2025BNL004174

PATIENT
  Sex: Male

DRUGS (1)
  1. SOOTHE HYDRATION [Suspect]
     Active Substance: POVIDONE
     Indication: Product used for unknown indication
     Route: 065

REACTIONS (4)
  - Cataract [Unknown]
  - Eye irritation [Unknown]
  - Physical disability [Unknown]
  - Expired product administered [Unknown]
